FAERS Safety Report 22704279 (Version 3)
Quarter: 2023Q4

REPORT INFORMATION
  Report Type: Spontaneous
  Country: US (occurrence: US)
  Receive Date: 20230714
  Receipt Date: 20231110
  Transmission Date: 20240109
  Serious: No
  Sender: FDA-Public Use
  Company Number: US-BIOGEN-2022BI01165275

PATIENT
  Sex: Female

DRUGS (23)
  1. VUMERITY [Suspect]
     Active Substance: DIROXIMEL FUMARATE
     Indication: Multiple sclerosis
     Dosage: 231MG TWICE A DAY FOR 7 DAYS
     Route: 050
     Dates: start: 20221023, end: 202210
  2. VUMERITY [Suspect]
     Active Substance: DIROXIMEL FUMARATE
     Dosage: RECENT THERAPY DATE: 24-JUL-2023
     Route: 050
     Dates: start: 20221030
  3. VUMERITY [Suspect]
     Active Substance: DIROXIMEL FUMARATE
     Dosage: TAKE 2 CAPSULES (462 MG TOTAL) BY MOUTH 2 TIMES DAILY.
     Route: 050
     Dates: start: 20230724
  4. PRILOSEC [Concomitant]
     Active Substance: OMEPRAZOLE MAGNESIUM
     Route: 050
  5. ALEVE [Concomitant]
     Active Substance: NAPROXEN SODIUM
     Route: 050
  6. AMANTADINE [Concomitant]
     Active Substance: AMANTADINE
     Route: 050
  7. CALCIUM CITRATE [Concomitant]
     Active Substance: CALCIUM CITRATE
     Route: 050
  8. CALTRATE WITH VITAMIN D [Concomitant]
     Active Substance: CALCIUM CARBONATE\CHOLECALCIFEROL
     Dosage: 600 UNITS
     Route: 050
  9. CYCLOBENZAPRINE [Concomitant]
     Active Substance: CYCLOBENZAPRINE
     Route: 050
  10. GINGER [Concomitant]
     Active Substance: GINGER
     Route: 050
  11. DIETARY SUPPLEMENT\HERBALS\MILK THISTLE [Concomitant]
     Active Substance: MILK THISTLE
     Route: 050
  12. NICOTINAMIDE [Concomitant]
     Active Substance: NIACINAMIDE
     Route: 050
  13. NP THYROID [Concomitant]
     Active Substance: LEVOTHYROXINE\LIOTHYRONINE
     Route: 050
  14. OMEPRAZOLE [Concomitant]
     Active Substance: OMEPRAZOLE
     Route: 050
  15. PREGNENOLONE [Concomitant]
     Active Substance: PREGNENOLONE
     Route: 050
  16. HERBALS\TURMERIC [Concomitant]
     Active Substance: HERBALS\TURMERIC
     Route: 050
  17. VENLAFAXINE HYDROCHLORIDE [Concomitant]
     Active Substance: VENLAFAXINE HYDROCHLORIDE
     Route: 050
  18. VITAMIN B12 [Concomitant]
     Active Substance: CYANOCOBALAMIN
     Route: 050
  19. VITAMIN C [Concomitant]
     Active Substance: ASCORBIC ACID
     Route: 050
  20. VITAMIN D3 [Concomitant]
     Active Substance: CHOLECALCIFEROL
     Dosage: 5000 UNIT
     Route: 050
  21. XANAX [Concomitant]
     Active Substance: ALPRAZOLAM
     Route: 050
  22. ZINC [Concomitant]
     Active Substance: PYRITHIONE ZINC\ZINC\ZINC CHLORIDE
     Route: 050
  23. HYDRALAZINE [Concomitant]
     Active Substance: HYDRALAZINE HYDROCHLORIDE
     Route: 050

REACTIONS (11)
  - Product dose omission in error [Unknown]
  - Gastrointestinal motility disorder [Not Recovered/Not Resolved]
  - Fatigue [Unknown]
  - Irritable bowel syndrome [Unknown]
  - Flatulence [Recovered/Resolved]
  - Hot flush [Not Recovered/Not Resolved]
  - Flushing [Unknown]
  - Feeling hot [Unknown]
  - Lymphocyte count decreased [Unknown]
  - Nausea [Unknown]
  - Dyspepsia [Recovered/Resolved]

NARRATIVE: CASE EVENT DATE: 20220101
